FAERS Safety Report 19299742 (Version 2)
Quarter: 2021Q2

REPORT INFORMATION
  Report Type: Spontaneous
  Country: US (occurrence: US)
  Receive Date: 20210524
  Receipt Date: 20210625
  Transmission Date: 20210717
  Serious: No
  Sender: FDA-Public Use
  Company Number: US-B.I. PHARMACEUTICALS,INC./RIDGEFIELD-2021-BI-105676

PATIENT
  Age: 62 Year
  Sex: Female

DRUGS (4)
  1. SPIRIVA RESPIMAT [Suspect]
     Active Substance: TIOTROPIUM BROMIDE
     Indication: ASTHMA
     Dosage: 1.25MCG, 2 PUFFS ONCE DAILY
     Dates: start: 20210504
  2. ALBUTEROL [SALBUTAMOL] [Concomitant]
     Active Substance: ALBUTEROL
     Indication: ASTHMA
     Dosage: ONCE DAILY
  3. ADVAIR HFA [Concomitant]
     Active Substance: FLUTICASONE PROPIONATE\SALMETEROL XINAFOATE
     Indication: PRODUCT USED FOR UNKNOWN INDICATION
     Dosage: 230/21MCG WITH SPACER 2 INHALATIONS ONCE DAILY
  4. VENTOLIN [Concomitant]
     Active Substance: ALBUTEROL SULFATE
     Indication: ASTHMA
     Dosage: 1 INHALATION AS NEEDED

REACTIONS (2)
  - Cough [Not Recovered/Not Resolved]
  - Device malfunction [Unknown]

NARRATIVE: CASE EVENT DATE: 20210504
